FAERS Safety Report 18240706 (Version 1)
Quarter: 2020Q3

REPORT INFORMATION
  Report Type: Spontaneous
  Country: US (occurrence: US)
  Receive Date: 20200908
  Receipt Date: 20200908
  Transmission Date: 20201103
  Serious: Yes (Other)
  Sender: FDA-Public Use
  Company Number: US-SA-2020SA242406

PATIENT

DRUGS (1)
  1. DUPIXENT [Suspect]
     Active Substance: DUPILUMAB
     Indication: PRODUCT USED FOR UNKNOWN INDICATION
     Dosage: 300 MG, QOW
     Route: 058

REACTIONS (7)
  - Vasculitis [Unknown]
  - Pyrexia [Unknown]
  - Rash [Unknown]
  - Multiple sclerosis [Unknown]
  - Procedural pain [Unknown]
  - Oral surgery [Unknown]
  - Post procedural complication [Unknown]

NARRATIVE: CASE EVENT DATE: 202008
